FAERS Safety Report 16633170 (Version 1)
Quarter: 2019Q3

REPORT INFORMATION
  Report Type: Spontaneous
  Country: US (occurrence: US)
  Receive Date: 20190725
  Receipt Date: 20190725
  Transmission Date: 20191004
  Serious: Yes (Death, Other)
  Sender: FDA-Public Use
  Company Number: US-SA-2019SA117140

PATIENT
  Age: 80 Year
  Sex: Male

DRUGS (1)
  1. GOLD BOND EXTRA STRENGTH [Suspect]
     Active Substance: MENTHOL

REACTIONS (3)
  - Brain neoplasm malignant [Fatal]
  - Injury [Unknown]
  - Mesothelioma [Fatal]

NARRATIVE: CASE EVENT DATE: 201807
